FAERS Safety Report 4268574-1 (Version None)
Quarter: 2004Q1

REPORT INFORMATION
  Report Type: 
  Country: None (occurrence: None)
  Receive Date: 20040112
  Receipt Date: 20031205
  Transmission Date: 20041129
  Serious: Yes (Death, Hospitalization)
  Sender: FDA-Public Use
  Company Number: PHBS2003DK13871

PATIENT
  Age: 63 Year
  Sex: Male

DRUGS (8)
  1. ZOMETA [Suspect]
     Indication: PROSTATE CANCER
     Route: 065
     Dates: start: 20031023
  2. OXYNORM [Concomitant]
  3. CONTALGIN [Concomitant]
  4. PAMOL [Concomitant]
  5. CODEINE [Concomitant]
  6. OXAPAX [Concomitant]
  7. LAXOBERAL ^FERRING^ [Concomitant]
  8. MEDILAX [Concomitant]

REACTIONS (2)
  - ALVEOLITIS ALLERGIC [None]
  - DYSPNOEA [None]
